FAERS Safety Report 7992168-5 (Version None)
Quarter: 2011Q4

REPORT INFORMATION
  Report Type: 
  Country: None (occurrence: None)
  Receive Date: 20111219
  Receipt Date: 20110708
  Transmission Date: 20120403
  Serious: No
  Sender: FDA-Public Use
  Company Number: US-ASTRAZENECA-2009UW04112

PATIENT
  Age: 88 Year
  Sex: Female
  Weight: 61.2 kg

DRUGS (3)
  1. CRESTOR [Suspect]
     Indication: HYPERCHOLESTEROLAEMIA
     Route: 048
  2. AVAPRO [Concomitant]
     Indication: HYPERTENSION
     Route: 048
  3. NORVASC [Concomitant]
     Indication: HYPERTENSION

REACTIONS (2)
  - JOINT SWELLING [None]
  - PAIN IN EXTREMITY [None]
